FAERS Safety Report 10549156 (Version 1)
Quarter: 2014Q4

REPORT INFORMATION
  Report Type: Spontaneous
  Country: US (occurrence: US)
  Receive Date: 20141028
  Receipt Date: 20141028
  Transmission Date: 20150529
  Serious: Yes (Other)
  Sender: FDA-Public Use
  Company Number: US-BAYER-2014-158018

PATIENT
  Age: 25 Year
  Sex: Female

DRUGS (1)
  1. MIRENA [Suspect]
     Active Substance: LEVONORGESTREL
     Indication: CONTRACEPTION
     Dosage: 20 MCG/24HR, CONT
     Route: 015

REACTIONS (11)
  - Headache [None]
  - Device dislocation [None]
  - Diarrhoea [None]
  - Bowel movement irregularity [None]
  - Post procedural haemorrhage [None]
  - Pregnancy with contraceptive device [None]
  - Abdominal pain [None]
  - Food craving [None]
  - Medical device discomfort [None]
  - Fatigue [None]
  - Amenorrhoea [None]

NARRATIVE: CASE EVENT DATE: 201406
